FAERS Safety Report 9408697 (Version 2)
Quarter: 2013Q3

REPORT INFORMATION
  Report Type: Spontaneous
  Country: US (occurrence: US)
  Receive Date: 20130712
  Receipt Date: 20130815
  Transmission Date: 20140515
  Serious: Yes (Other)
  Sender: FDA-Public Use
  Company Number: US-PFIZER INC-2013205498

PATIENT
  Age: 56 Year
  Sex: Female

DRUGS (5)
  1. PRISTIQ [Suspect]
     Dosage: 100 MG, 1X/DAY
  2. PRISTIQ [Suspect]
     Dosage: 50 MG, 1X/DAY
  3. ADDERALL [Concomitant]
     Dosage: UNK
  4. LORATADINE [Concomitant]
     Dosage: UNK
  5. CLIMARA PRO [Concomitant]
     Dosage: UNK

REACTIONS (1)
  - Depression [Unknown]
